FAERS Safety Report 14595430 (Version 1)
Quarter: 2018Q1

REPORT INFORMATION
  Report Type: Other
  Country: GB (occurrence: GB)
  Receive Date: 20180302
  Receipt Date: 20180302
  Transmission Date: 20180509
  Serious: Yes (Other)
  Sender: FDA-Public Use
  Company Number: GB-MACLEODS PHARMACEUTICALS US LTD-MAC2018010656

PATIENT

DRUGS (2)
  1. ARIPIPRAZOLE  15 MG [Suspect]
     Active Substance: ARIPIPRAZOLE
     Dosage: 15 MG, UNK
     Route: 048
     Dates: end: 201801
  2. ARIPIPRAZOLE  15 MG [Suspect]
     Active Substance: ARIPIPRAZOLE
     Indication: MENTAL DISORDER
     Dosage: 10 MG, UNK
     Route: 048
     Dates: start: 201703

REACTIONS (9)
  - Monocyte count increased [Recovering/Resolving]
  - Malaise [Unknown]
  - Red cell distribution width increased [Recovering/Resolving]
  - Mean cell haemoglobin decreased [Recovering/Resolving]
  - White blood cell count increased [Recovering/Resolving]
  - Neutrophil count increased [Recovering/Resolving]
  - Fatigue [Unknown]
  - Platelet count increased [Recovering/Resolving]
  - Mean cell volume decreased [Recovering/Resolving]

NARRATIVE: CASE EVENT DATE: 201711
